FAERS Safety Report 9844372 (Version 1)
Quarter: 2014Q1

REPORT INFORMATION
  Report Type: Report from Study
  Country: US (occurrence: US)
  Receive Date: 20140127
  Receipt Date: 20140127
  Transmission Date: 20141002
  Serious: No
  Sender: FDA-Public Use
  Company Number: PHEH2014US001492

PATIENT
  Age: 81 Year
  Sex: Male

DRUGS (14)
  1. TASIGNA [Suspect]
     Indication: CHRONIC MYELOID LEUKAEMIA
     Dosage: 400 MG, BID
     Route: 048
     Dates: start: 20121012
  2. WARFARIN SODIUM [Concomitant]
     Dosage: UNK UKN, UNK
  3. FUROSEMIDE [Concomitant]
     Dosage: UNK UKN, UNK
  4. KLOR CON M10 [Concomitant]
     Dosage: UNK UKN, UNK
  5. TERAZOSIN HCL [Concomitant]
     Dosage: UNK UKN, UNK
  6. PRAVASTATIN SODIUM [Concomitant]
     Dosage: UNK UKN, UNK
  7. LISINOPRIL [Concomitant]
     Dosage: UNK UKN, UNK
  8. VITAMIN D [Concomitant]
     Dosage: UNK UKN, UNK
  9. SILYMARIN [Concomitant]
     Dosage: UNK UKN, UNK
  10. SAW PALMETTO XTRA [Concomitant]
     Dosage: UNK UKN, UNK
  11. VITAMIIN C [Concomitant]
     Dosage: UNK UKN, UNK
  12. VITAMIN A [Concomitant]
     Dosage: UNK UKN, UNK
  13. CALCIUM + VITAMIN D                /01483701/ [Concomitant]
     Dosage: UNK UKN, UNK
  14. VITAMIN B COMPLEX [Concomitant]
     Dosage: UNK UKN, UNK

REACTIONS (2)
  - Accidental overdose [Not Recovered/Not Resolved]
  - Abdominal discomfort [Not Recovered/Not Resolved]
